FAERS Safety Report 25829966 (Version 4)
Quarter: 2025Q4

REPORT INFORMATION
  Report Type: Spontaneous
  Country: MX (occurrence: MX)
  Receive Date: 20250922
  Receipt Date: 20251216
  Transmission Date: 20260118
  Serious: Yes (Other)
  Sender: SANDOZ
  Company Number: MX-002147023-NVSC2025MX067839

PATIENT
  Age: 59 Year
  Sex: Female
  Weight: 63 kg

DRUGS (18)
  1. ANASTROZOLE [Suspect]
     Active Substance: ANASTROZOLE
     Indication: Product used for unknown indication
     Dosage: UNK
     Route: 065
  2. FULVESTRANT [Suspect]
     Active Substance: FULVESTRANT
     Indication: Metastases to bone
     Dosage: 1 DOSAGE FORM, QMO (1 APPLICATION)
     Route: 030
     Dates: start: 20250228
  3. FULVESTRANT [Suspect]
     Active Substance: FULVESTRANT
     Indication: Metastases to lung
     Dosage: 2 DOSAGE FORM, (INJECTABLE 250 MG/ ML IN 2 SYRINGE), QMO
     Route: 030
     Dates: start: 202403
  4. KISQALI [Suspect]
     Active Substance: RIBOCICLIB SUCCINATE
     Dosage: 3 DOSAGE FORM (200MG), QD
     Route: 048
     Dates: start: 20250228
  5. KISQALI [Suspect]
     Active Substance: RIBOCICLIB SUCCINATE
     Dosage: 3 DOSAGE FORM (200MG), QD(IN THE MORNING / FOR 21 DAYS AND 7 DAYS OF REST)
     Route: 048
     Dates: start: 202502
  6. KISQALI [Suspect]
     Active Substance: RIBOCICLIB SUCCINATE
     Indication: Metastases to lung
     Dosage: 2 DOSAGE FORM, QD
     Route: 048
  7. KISQALI [Suspect]
     Active Substance: RIBOCICLIB SUCCINATE
     Dosage: 3 DOSAGE FORM (200MG), QD
     Route: 048
  8. KISQALI [Suspect]
     Active Substance: RIBOCICLIB SUCCINATE
     Indication: Breast cancer
     Dosage: 3 DOSAGE FORM, 200 MG, QD
     Route: 048
  9. KISQALI [Suspect]
     Active Substance: RIBOCICLIB SUCCINATE
     Indication: Metastases to bone
     Dosage: 3 DOSAGE FORM, 200 MG, QD
     Route: 048
  10. LEVOTHYROXINE SODIUM [Suspect]
     Active Substance: LEVOTHYROXINE SODIUM
     Dosage: 1 DF, QD  1 DOSAGE FORM (125 MCG), QD
     Route: 048
     Dates: start: 20250917, end: 20251118
  11. LEVOTHYROXINE SODIUM [Suspect]
     Active Substance: LEVOTHYROXINE SODIUM
     Indication: Product used for unknown indication
     Dosage: 1 DOSAGE FORM(100MCG), Q24H
     Route: 048
     Dates: start: 20250323, end: 20250328
  12. LEVOTHYROXINE SODIUM [Suspect]
     Active Substance: LEVOTHYROXINE SODIUM
     Dosage: UNK
     Route: 065
     Dates: start: 20251119
  13. PREGABALIN [Suspect]
     Active Substance: PREGABALIN
     Dosage: 1 DF, Q12H
     Route: 048
     Dates: start: 202503, end: 202503
  14. PREGABALIN [Suspect]
     Active Substance: PREGABALIN
     Indication: Spinal pain
     Dosage: 3 DOSAGE FORM (3 CONTINUOUSLY FOR 3 NIGHTS)
     Route: 065
  15. ACETAMINOPHEN [Concomitant]
     Active Substance: ACETAMINOPHEN
     Indication: Product used for unknown indication
     Dosage: 1 DOSAGE FORM (500 MG), Q12H
     Route: 065
     Dates: start: 20250509
  16. SOLORO 7 [Concomitant]
     Dosage: 1 DOSAGE FORM (10MG), QW (EVERY 7 DAYS)
     Route: 003
     Dates: start: 20250509
  17. SOLORO 7 [Concomitant]
     Indication: Spinal pain
     Dosage: 2 DOSAGE FORM, 10 MICROGRAMS, QW PATCHES
     Route: 062
     Dates: start: 201203
  18. SOLORO 7 [Concomitant]
     Indication: Bone pain
     Dosage: 1 DOSAGE FORM, 7QD PATCHES
     Route: 062
     Dates: start: 20250401

REACTIONS (19)
  - Hypothyroidism [Not Recovered/Not Resolved]
  - Concomitant disease aggravated [Unknown]
  - Thyroid mass [Not Recovered/Not Resolved]
  - Vertigo [Recovered/Resolved]
  - Dizziness [Recovered/Resolved]
  - Blood thyroid stimulating hormone increased [Not Recovered/Not Resolved]
  - Thyroxine free decreased [Not Recovered/Not Resolved]
  - Musculoskeletal pain [Unknown]
  - Varicose vein [Recovered/Resolved]
  - Gait disturbance [Recovered/Resolved]
  - Pain [Recovered/Resolved]
  - Weight increased [Recovered/Resolved]
  - Diarrhoea [Unknown]
  - Blood pressure increased [Recovered/Resolved]
  - Nausea [Recovered/Resolved]
  - Dysphonia [Not Recovered/Not Resolved]
  - Dyspnoea [Unknown]
  - Headache [Recovered/Resolved]
  - Product dose omission in error [Unknown]

NARRATIVE: CASE EVENT DATE: 20241101
